FAERS Safety Report 6041566-8 (Version None)
Quarter: 2009Q1

REPORT INFORMATION
  Report Type: 
  Country: None (occurrence: None)
  Receive Date: 20090116
  Receipt Date: 20081023
  Transmission Date: 20090719
  Serious: No
  Sender: FDA-Public Use
  Company Number: US-BRISTOL-MYERS SQUIBB COMPANY-14381669

PATIENT
  Age: 45 Year
  Sex: Female

DRUGS (3)
  1. ABILIFY [Suspect]
     Indication: MAJOR DEPRESSION
  2. ZOLOFT [Concomitant]
  3. RISPERDAL [Concomitant]
     Dosage: RISPERDAL WAS DISCONTINUED.

REACTIONS (1)
  - NAUSEA [None]
